FAERS Safety Report 9437153 (Version 1)
Quarter: 2013Q3

REPORT INFORMATION
  Report Type: Spontaneous
  Country: US (occurrence: US)
  Receive Date: 20130802
  Receipt Date: 20130802
  Transmission Date: 20140515
  Serious: Yes (Hospitalization)
  Sender: FDA-Public Use
  Company Number: US-BAYER-2013-092165

PATIENT
  Age: 19 Year
  Sex: Female

DRUGS (9)
  1. BEYAZ [Suspect]
  2. YAZ [Suspect]
  3. DICYCLOMINE HCL [Concomitant]
  4. OMEPRAZOLE [Concomitant]
  5. HYDROCODONE/ACETAMINOPHEN [Concomitant]
  6. VALACICLOVIR [Concomitant]
  7. LEVOFLOXACIN [Concomitant]
  8. PREDNISONE [Concomitant]
  9. LEXAPRO [Concomitant]

REACTIONS (1)
  - Pulmonary embolism [Recovering/Resolving]
